FAERS Safety Report 20780000 (Version 7)
Quarter: 2022Q4

REPORT INFORMATION
  Report Type: Report from Study
  Country: US (occurrence: US)
  Receive Date: 20220503
  Receipt Date: 20221223
  Transmission Date: 20230113
  Serious: Yes (Hospitalization, Other)
  Sender: FDA-Public Use
  Company Number: US-BoehringerIngelheim-2021-BI-142179

PATIENT
  Age: 74 Year
  Sex: Male

DRUGS (2)
  1. OFEV [Suspect]
     Active Substance: NINTEDANIB
     Indication: Idiopathic pulmonary fibrosis
     Route: 048
     Dates: start: 20211021
  2. OFEV [Suspect]
     Active Substance: NINTEDANIB
     Dosage: 150MG BY MOUTH TWICE DAILY
     Route: 048
     Dates: start: 20211021

REACTIONS (25)
  - Prostate cancer [Unknown]
  - Nephrolithiasis [Recovered/Resolved]
  - Lymphoma [Not Recovered/Not Resolved]
  - Diarrhoea [Unknown]
  - Middle ear effusion [Not Recovered/Not Resolved]
  - Blood pressure fluctuation [Unknown]
  - Diarrhoea [Recovered/Resolved]
  - Nasopharyngitis [Recovered/Resolved]
  - Asthenia [Recovered/Resolved]
  - Chills [Recovered/Resolved]
  - Bronchitis [Recovered/Resolved]
  - Nausea [Unknown]
  - Fatigue [Not Recovered/Not Resolved]
  - Rectal haemorrhage [Recovered/Resolved]
  - Haematuria [Recovered/Resolved]
  - Abdominal pain [Not Recovered/Not Resolved]
  - Joint swelling [Unknown]
  - Somnolence [Not Recovered/Not Resolved]
  - Influenza [Recovered/Resolved]
  - Renal cyst [Not Recovered/Not Resolved]
  - Peripheral swelling [Not Recovered/Not Resolved]
  - Bowel movement irregularity [Unknown]
  - Mobility decreased [Not Recovered/Not Resolved]
  - Blood pressure increased [Unknown]
  - Contusion [Not Recovered/Not Resolved]
